FAERS Safety Report 5303175-5 (Version None)
Quarter: 2007Q1

REPORT INFORMATION
  Report Type: 
  Country: None (occurrence: None)
  Receive Date: 20070201
  Receipt Date: 20061121
  Transmission Date: 20070707
  Serious: No
  Sender: FDA-Public Use
  Company Number: 2006PV025680

PATIENT
  Age: 48 Year
  Sex: Female
  Weight: 68.4932 kg

DRUGS (4)
  1. BYETTA [Suspect]
     Indication: DIABETES MELLITUS NON-INSULIN-DEPENDENT
     Dosage: 10 MCG;BID;SC
     Route: 058
     Dates: start: 20061010
  2. LISINOPRIL [Concomitant]
  3. SULFONYLUREA [Concomitant]
  4. LANTUS [Concomitant]

REACTIONS (5)
  - ANXIETY [None]
  - BLOOD GLUCOSE DECREASED [None]
  - BLOOD GLUCOSE INCREASED [None]
  - SPEECH DISORDER [None]
  - TREMOR [None]
